FAERS Safety Report 6695800-1 (Version None)
Quarter: 2010Q2

REPORT INFORMATION
  Report Type: 
  Country: None (occurrence: None)
  Receive Date: 20100421
  Receipt Date: 20100406
  Transmission Date: 20101027
  Serious: Yes (Hospitalization)
  Sender: FDA-Public Use
  Company Number: 2010000841

PATIENT
  Age: 48 Year
  Sex: Female

DRUGS (2)
  1. ERLOTINIB HYDROCHLORIDE [Suspect]
     Indication: NON-SMALL CELL LUNG CANCER
     Dosage: 150 MG, QD, ORAL
     Route: 048
  2. FUSIDIC ACID [Suspect]
     Indication: NON-SMALL CELL LUNG CANCER
     Dosage: BID, TOPICAL
     Route: 061
     Dates: start: 20100128

REACTIONS (2)
  - ASTHENIA [None]
  - MUSCULOSKELETAL CHEST PAIN [None]
